FAERS Safety Report 20764768 (Version 1)
Quarter: 2022Q2

REPORT INFORMATION
  Report Type: Spontaneous
  Country: JP (occurrence: JP)
  Receive Date: 20220428
  Receipt Date: 20220428
  Transmission Date: 20220720
  Serious: Yes (Death)
  Sender: FDA-Public Use
  Company Number: JP-ABBVIE-22K-087-4374194-00

PATIENT
  Age: 76 Year
  Sex: Male

DRUGS (16)
  1. ADALIMUMAB [Suspect]
     Active Substance: ADALIMUMAB
     Indication: Behcet^s syndrome
     Route: 058
  2. ADALIMUMAB [Suspect]
     Active Substance: ADALIMUMAB
     Route: 058
  3. INFLIXIMAB [Concomitant]
     Active Substance: INFLIXIMAB
     Indication: Behcet^s syndrome
  4. COLCHICINE [Concomitant]
     Active Substance: COLCHICINE
     Indication: Behcet^s syndrome
  5. MESALAMINE [Concomitant]
     Active Substance: MESALAMINE
     Indication: Behcet^s syndrome
  6. MIZORIBINE [Concomitant]
     Active Substance: MIZORIBINE
     Indication: Behcet^s syndrome
  7. PIPERACILLIN AND TAZOBACTAM [Concomitant]
     Active Substance: PIPERACILLIN SODIUM\TAZOBACTAM SODIUM
     Indication: Product used for unknown indication
  8. HYDROCORTISONE [Concomitant]
     Active Substance: HYDROCORTISONE
     Indication: Product used for unknown indication
  9. HYDROCORTISONE [Concomitant]
     Active Substance: HYDROCORTISONE
  10. HYDROCORTISONE [Concomitant]
     Active Substance: HYDROCORTISONE
  11. DEXAMETHASONE [Concomitant]
     Active Substance: DEXAMETHASONE
     Indication: Product used for unknown indication
  12. PREDNISOLONE [Concomitant]
     Active Substance: PREDNISOLONE
     Indication: Product used for unknown indication
  13. PREDNISOLONE [Concomitant]
     Active Substance: PREDNISOLONE
  14. TACROLIMUS [Concomitant]
     Active Substance: TACROLIMUS
     Indication: Product used for unknown indication
  15. TACROLIMUS [Concomitant]
     Active Substance: TACROLIMUS
  16. BETAMETHASONE [Concomitant]
     Active Substance: BETAMETHASONE
     Indication: Product used for unknown indication

REACTIONS (3)
  - Renal infarct [Fatal]
  - Disseminated mucormycosis [Fatal]
  - Therapeutic product effect incomplete [Unknown]
